FAERS Safety Report 20079059 (Version 1)
Quarter: 2021Q4

REPORT INFORMATION
  Report Type: Spontaneous
  Country: FR (occurrence: FR)
  Receive Date: 20211117
  Receipt Date: 20211117
  Transmission Date: 20220303
  Serious: Yes (Hospitalization, Other)
  Sender: FDA-Public Use
  Company Number: FR-ACTAVIS-2009B-04202

PATIENT
  Age: 46 Year
  Sex: Male

DRUGS (2)
  1. IBUPROFEN [Suspect]
     Active Substance: IBUPROFEN
     Indication: Oropharyngeal discomfort
     Dosage: 400 MILLIGRAM
     Route: 048
     Dates: start: 20080708, end: 20080709
  2. CELLCEPT [Concomitant]
     Active Substance: MYCOPHENOLATE MOFETIL\MYCOPHENOLATE MOFETIL HYDROCHLORIDE
     Indication: Multiple sclerosis
     Dosage: 2 G, ONCE A DAY
     Route: 065

REACTIONS (1)
  - Agranulocytosis [Recovered/Resolved]
